FAERS Safety Report 4971141-5 (Version None)
Quarter: 2006Q1

REPORT INFORMATION
  Report Type: 
  Country: None (occurrence: None)
  Receive Date: 20060223
  Receipt Date: 20050119
  Transmission Date: 20060701
  Serious: Yes (Death)
  Sender: FDA-Public Use
  Company Number: HQWYE742520JAN05

PATIENT
  Age: 41 Year
  Sex: Female

DRUGS (3)
  1. EFFEXOR [Suspect]
     Indication: FIBROMYALGIA
     Dosage: ORAL
     Route: 048
  2. SEROQUEL [Suspect]
  3. PROVIGIL [Concomitant]

REACTIONS (2)
  - COMPLETED SUICIDE [None]
  - DRUG LEVEL INCREASED [None]
